FAERS Safety Report 13381786 (Version 1)
Quarter: 2017Q1

REPORT INFORMATION
  Report Type: Spontaneous
  Country: US (occurrence: US)
  Receive Date: 20170329
  Receipt Date: 20170329
  Transmission Date: 20170429
  Serious: Yes (Other)
  Sender: FDA-Public Use
  Company Number: None

PATIENT
  Age: 72 Year
  Sex: Female
  Weight: 61.24 kg

DRUGS (1)
  1. PIROXICAM 20MG TABLET [Suspect]
     Active Substance: PIROXICAM
     Dosage: 2 YRS PRIOR TO O.R.??PAIN FOR APPR. A YR

REACTIONS (3)
  - Crepitations [None]
  - Pain [None]
  - Musculoskeletal discomfort [None]

NARRATIVE: CASE EVENT DATE: 2009
